FAERS Safety Report 14103308 (Version 1)
Quarter: 2017Q4

REPORT INFORMATION
  Report Type: Spontaneous
  Country: SE (occurrence: SE)
  Receive Date: 20171018
  Receipt Date: 20171018
  Transmission Date: 20180321
  Serious: Yes (Hospitalization)
  Sender: FDA-Public Use
  Company Number: SE-PFIZER INC-2017444757

PATIENT
  Age: 26 Year
  Sex: Female

DRUGS (1)
  1. XANOR [Suspect]
     Active Substance: ALPRAZOLAM
     Dosage: 10 DF, SINGLE
     Dates: start: 20170908, end: 20170908

REACTIONS (4)
  - Toxicity to various agents [Unknown]
  - Suicide attempt [Unknown]
  - Feeling abnormal [Unknown]
  - Somnolence [Unknown]

NARRATIVE: CASE EVENT DATE: 20170908
